FAERS Safety Report 7907319-8 (Version None)
Quarter: 2011Q4

REPORT INFORMATION
  Report Type: 
  Country: None (occurrence: None)
  Receive Date: 20111110
  Receipt Date: 20091229
  Transmission Date: 20120403
  Serious: Yes (Other)
  Sender: FDA-Public Use
  Company Number: SE-GLAXOSMITHKLINE-B0622571A

PATIENT
  Sex: Female

DRUGS (1)
  1. PAROXETINE HCL [Suspect]
     Indication: PREMENSTRUAL SYNDROME
     Route: 065
     Dates: end: 20091008

REACTIONS (11)
  - PAIN [None]
  - CONVULSION [None]
  - DISCOMFORT [None]
  - ANXIETY [None]
  - DEPRESSION [None]
  - GASTRIC DISORDER [None]
  - MIGRAINE [None]
  - NAUSEA [None]
  - DEPRESSED MOOD [None]
  - PYREXIA [None]
  - MUSCULOSKELETAL STIFFNESS [None]
